FAERS Safety Report 9380927 (Version 2)
Quarter: 2013Q3

REPORT INFORMATION
  Report Type: Spontaneous
  Country: BE (occurrence: BE)
  Receive Date: 20130703
  Receipt Date: 20130918
  Transmission Date: 20140515
  Serious: Yes (Hospitalization)
  Sender: FDA-Public Use
  Company Number: BE-ROCHE-1244009

PATIENT
  Age: 18 Year
  Sex: Female

DRUGS (2)
  1. ROACCUTANE [Suspect]
     Indication: ACNE
     Route: 065
  2. OMEPRAZOLE [Concomitant]
     Indication: OESOPHAGITIS
     Route: 048

REACTIONS (3)
  - Delirium [Recovered/Resolved]
  - Hallucination [Recovered/Resolved]
  - Psychomotor hyperactivity [Recovered/Resolved]
